FAERS Safety Report 21477009 (Version 1)
Quarter: 2022Q4

REPORT INFORMATION
  Report Type: Spontaneous
  Country: US (occurrence: US)
  Receive Date: 20221019
  Receipt Date: 20221019
  Transmission Date: 20230112
  Serious: No
  Sender: FDA-Public Use
  Company Number: US-AUROBINDO-AUR-APL-2022-018505

PATIENT
  Age: 64 Year
  Sex: Female
  Weight: 77 kg

DRUGS (2)
  1. CARVEDILOL [Suspect]
     Active Substance: CARVEDILOL
     Indication: Product used for unknown indication
     Dosage: 6.25 MILLIGRAM, TWO TIMES A DAY
     Route: 048
     Dates: start: 20220501, end: 20220514
  2. PRESTORIL [Concomitant]
     Indication: Product used for unknown indication
     Dosage: 5 MILLIGRAM
     Route: 065

REACTIONS (3)
  - Urticaria [Recovering/Resolving]
  - Reaction to excipient [Recovering/Resolving]
  - Product substitution issue [Unknown]

NARRATIVE: CASE EVENT DATE: 20220510
